FAERS Safety Report 8590272-4 (Version None)
Quarter: 2012Q3

REPORT INFORMATION
  Report Type: 
  Country: None (occurrence: None)
  Receive Date: 20120813
  Receipt Date: 20120808
  Transmission Date: 20120928
  Serious: Yes (Other)
  Sender: FDA-Public Use
  Company Number: US-GLAXOSMITHKLINE-A0988789A

PATIENT
  Age: 59 Year
  Sex: Male

DRUGS (7)
  1. SIMVASTATIN [Concomitant]
  2. FLUTICASONE PROPIONATE [Suspect]
     Indication: ASTHMA
     Dosage: 1PUFF TWICE PER DAY
     Route: 055
     Dates: start: 20070101
  3. PROAIR HFA [Concomitant]
  4. NASACORT [Concomitant]
  5. MULTI-VITAMIN [Concomitant]
  6. FISH OIL [Concomitant]
  7. ASPIRIN [Concomitant]

REACTIONS (5)
  - THROAT IRRITATION [None]
  - PRODUCT QUALITY ISSUE [None]
  - ASTHMA [None]
  - DRUG INEFFECTIVE [None]
  - INCORRECT PRODUCT STORAGE [None]
